FAERS Safety Report 6896314-6 (Version None)
Quarter: 2010Q3

REPORT INFORMATION
  Report Type: 
  Country: None (occurrence: None)
  Receive Date: 20100802
  Receipt Date: 20100723
  Transmission Date: 20110219
  Serious: Yes (Hospitalization, Other)
  Sender: FDA-Public Use
  Company Number: US-AMGEN-KDC426647

PATIENT
  Age: 55 Year
  Sex: Male
  Weight: 106.82 kg

DRUGS (3)
  1. PANITUMUMAB [Suspect]
     Indication: PANCREATIC CARCINOMA
     Route: 042
     Dates: start: 20100630
  2. GEMZAR [Suspect]
     Route: 042
     Dates: start: 20100630
  3. ERLOTINIB HYDROCHLORIDE [Suspect]
     Route: 048
     Dates: start: 20100630

REACTIONS (3)
  - EMBOLISM ARTERIAL [None]
  - HYPERGLYCAEMIA [None]
  - THROMBOSIS [None]
